FAERS Safety Report 7004851-9 (Version None)
Quarter: 2010Q3

REPORT INFORMATION
  Report Type: 
  Country: None (occurrence: None)
  Receive Date: 20100921
  Receipt Date: 20100910
  Transmission Date: 20110219
  Serious: Yes (Other)
  Sender: FDA-Public Use
  Company Number: CN-SANOFI-AVENTIS-2010SA053441

PATIENT
  Age: 70 Year
  Sex: Female

DRUGS (4)
  1. MILRINONE [Suspect]
     Route: 041
     Dates: start: 20090826, end: 20090826
  2. FOSINOPRIL SODIUM [Concomitant]
     Indication: HYPERTENSION
     Route: 048
  3. BISOPROLOL [Concomitant]
     Indication: HYPERTENSION
     Route: 048
  4. ETIMICIN [Concomitant]
     Indication: INFECTION
     Route: 041
     Dates: start: 20090826

REACTIONS (1)
  - ATRIAL FIBRILLATION [None]
